FAERS Safety Report 13421891 (Version 12)
Quarter: 2021Q1

REPORT INFORMATION
  Report Type: Spontaneous
  Country: US (occurrence: US)
  Receive Date: 20170410
  Receipt Date: 20210212
  Transmission Date: 20210419
  Serious: Yes (Other)
  Sender: FDA-Public Use
  Company Number: US-PFIZER INC-2017148343

PATIENT
  Age: 68 Year
  Sex: Female
  Weight: 97 kg

DRUGS (2)
  1. IBRANCE [Suspect]
     Active Substance: PALBOCICLIB
     Indication: BREAST CANCER METASTATIC
     Dosage: 100 MG, CYCLIC (FOR 21 DAYS AND OFF FOR 7 DAYS)
     Route: 048
     Dates: start: 201601, end: 2016
  2. IBRANCE [Suspect]
     Active Substance: PALBOCICLIB
     Dosage: 100 MG, CYCLIC (SIG ONE DAILY FOR 14 DAYS ON 14 DAYS OFF AND REPEAT)
     Route: 048
     Dates: start: 20161214

REACTIONS (9)
  - Neutropenia [Recovered/Resolved]
  - Renal cancer [Unknown]
  - Product prescribing error [Unknown]
  - Peripheral swelling [Unknown]
  - Feeling abnormal [Unknown]
  - Renal failure [Unknown]
  - White blood cell count decreased [Recovered/Resolved]
  - Haemoglobin decreased [Unknown]
  - Illness [Unknown]

NARRATIVE: CASE EVENT DATE: 2016
